FAERS Safety Report 7244872-4 (Version None)
Quarter: 2011Q1

REPORT INFORMATION
  Report Type: 
  Country: None (occurrence: None)
  Receive Date: 20110126
  Receipt Date: 20110121
  Transmission Date: 20110831
  Serious: No
  Sender: FDA-Public Use
  Company Number: US-PFIZER INC-2011015600

PATIENT
  Sex: Female
  Weight: 88.435 kg

DRUGS (1)
  1. EFFEXOR XR [Suspect]
     Indication: MENOPAUSAL SYMPTOMS
     Dosage: 75 MG, DAILY
     Route: 048
     Dates: start: 20101123

REACTIONS (4)
  - NAUSEA [None]
  - DRUG INEFFECTIVE [None]
  - HEADACHE [None]
  - NIGHT SWEATS [None]
